FAERS Safety Report 5337767-4 (Version None)
Quarter: 2007Q2

REPORT INFORMATION
  Report Type: 
  Country: None (occurrence: None)
  Receive Date: 20070308
  Receipt Date: 20070112
  Transmission Date: 20071010
  Serious: No
  Sender: FDA-Public Use
  Company Number: 2006-BP-15046BP

PATIENT
  Sex: Female

DRUGS (1)
  1. SPIRIVA [Suspect]
     Indication: CHRONIC OBSTRUCTIVE PULMONARY DISEASE
     Dosage: (18 MCG), IH
     Route: 055
     Dates: end: 20070109

REACTIONS (4)
  - CONSTIPATION [None]
  - COUGH [None]
  - DRY MOUTH [None]
  - SLEEP DISORDER [None]
